FAERS Safety Report 4447851-5 (Version None)
Quarter: 2004Q3

REPORT INFORMATION
  Report Type: 
  Country: None (occurrence: None)
  Receive Date: 20040812
  Receipt Date: 20040528
  Transmission Date: 20050211
  Serious: No
  Sender: FDA-Public Use
  Company Number: USA040668858

PATIENT
  Sex: Male
  Weight: 132 kg

DRUGS (3)
  1. CIALIS [Suspect]
     Indication: ERECTILE DYSFUNCTION
     Dosage: 20 MG/3 WEEK
     Dates: start: 20040301
  2. NORVASC [Concomitant]
  3. HYDROCHLOROTHIAZIDE [Concomitant]

REACTIONS (2)
  - PREMATURE EJACULATION [None]
  - THERAPEUTIC RESPONSE DECREASED [None]
